FAERS Safety Report 18087738 (Version 8)
Quarter: 2025Q2

REPORT INFORMATION
  Report Type: Report from Study
  Country: DE (occurrence: DE)
  Receive Date: 20200729
  Receipt Date: 20250403
  Transmission Date: 20250717
  Serious: No
  Sender: TAKEDA
  Company Number: DE-SHIRE-DE201945801

PATIENT
  Age: 32 Year
  Sex: Male

DRUGS (13)
  1. TEDUGLUTIDE [Suspect]
     Active Substance: TEDUGLUTIDE
     Indication: Short-bowel syndrome
     Dosage: 3 MILLIGRAM, QD
     Dates: start: 20180405, end: 20180904
  2. TEDUGLUTIDE [Suspect]
     Active Substance: TEDUGLUTIDE
     Dosage: 3.2 MILLIGRAM, QD
     Dates: start: 20180905, end: 20200715
  3. TEDUGLUTIDE [Suspect]
     Active Substance: TEDUGLUTIDE
  4. TEDUGLUTIDE [Suspect]
     Active Substance: TEDUGLUTIDE
  5. CHOLESTYRAMINE [Concomitant]
     Active Substance: CHOLESTYRAMINE
     Indication: Product used for unknown indication
  6. PANTOPRAZOLE [Concomitant]
     Active Substance: PANTOPRAZOLE
     Indication: Product used for unknown indication
     Dosage: 40 MILLIGRAM, BID
     Dates: start: 201806, end: 2020
  7. DIETARY SUPPLEMENT\HERBALS\MILK THISTLE [Concomitant]
     Active Substance: MILK THISTLE
     Indication: Product used for unknown indication
     Dosage: 200 MILLIGRAM, BID
     Dates: start: 2019, end: 2021
  8. AZITHROMYCIN [Concomitant]
     Active Substance: AZITHROMYCIN
     Indication: Gastroenteritis
     Dates: start: 20210904, end: 20210906
  9. MEROPENEM [Concomitant]
     Active Substance: MEROPENEM
     Indication: Gastroenteritis
  10. POTASSIUM [Concomitant]
     Active Substance: POTASSIUM
     Indication: Hypokalaemia
  11. ESCHERICHIA COLI [Concomitant]
     Active Substance: ESCHERICHIA COLI
     Indication: Lactic acidosis
     Dosage: UNK UNK, BID
     Dates: start: 201806, end: 2019
  12. URSODIOL [Concomitant]
     Active Substance: URSODIOL
     Indication: Cholelithiasis
     Dosage: 750 MILLIGRAM, BID
     Dates: start: 20190705
  13. LOPERAMIDE [Concomitant]
     Active Substance: LOPERAMIDE
     Indication: Product used for unknown indication

REACTIONS (2)
  - Gastric polyps [Recovered/Resolved]
  - Gastric cyst [Recovered/Resolved]

NARRATIVE: CASE EVENT DATE: 20190924
